FAERS Safety Report 7717606-4 (Version None)
Quarter: 2011Q3

REPORT INFORMATION
  Report Type: 
  Country: None (occurrence: None)
  Receive Date: 20110830
  Receipt Date: 20110824
  Transmission Date: 20111222
  Serious: Yes (Other)
  Sender: FDA-Public Use
  Company Number: US-BRISTOL-MYERS SQUIBB COMPANY-15998719

PATIENT
  Age: 62 Year
  Sex: Male

DRUGS (2)
  1. PLAVIX [Concomitant]
  2. ONGLYZA [Suspect]

REACTIONS (2)
  - CARDIAC DISORDER [None]
  - RENAL DISORDER [None]
